FAERS Safety Report 7491917-2 (Version None)
Quarter: 2011Q2

REPORT INFORMATION
  Report Type: 
  Country: None (occurrence: None)
  Receive Date: 20110518
  Receipt Date: 20110518
  Transmission Date: 20111010
  Serious: No
  Sender: FDA-Public Use
  Company Number: None

PATIENT
  Sex: Female
  Weight: 80.2867 kg

DRUGS (1)
  1. IMDUR [Suspect]
     Indication: CORONARY ARTERY DISEASE
     Dosage: IMDUR 30MG ONE DLY PO
     Route: 048
     Dates: start: 20070101

REACTIONS (3)
  - URTICARIA [None]
  - PRODUCT SUBSTITUTION ISSUE [None]
  - RASH GENERALISED [None]
